FAERS Safety Report 6555961-1 (Version None)
Quarter: 2010Q1

REPORT INFORMATION
  Report Type: 
  Country: None (occurrence: None)
  Receive Date: 20100128
  Receipt Date: 20100125
  Transmission Date: 20100710
  Serious: Yes (Death)
  Sender: FDA-Public Use
  Company Number: IN-BRISTOL-MYERS SQUIBB COMPANY-14948954

PATIENT
  Age: 70 Year
  Sex: Male
  Weight: 48 kg

DRUGS (8)
  1. CARBOPLATIN [Suspect]
     Indication: NON-SMALL CELL LUNG CANCER
     Route: 042
     Dates: start: 20090907
  2. PACLITAXEL [Suspect]
     Indication: NON-SMALL CELL LUNG CANCER
     Route: 042
     Dates: start: 20090907
  3. CP-751,871 [Suspect]
     Indication: NON-SMALL CELL LUNG CANCER
     Route: 042
     Dates: start: 20090907, end: 20090930
  4. INH [Concomitant]
     Dosage: TABLET
     Dates: start: 20091105
  5. RIFAMPICIN [Concomitant]
     Dosage: CAPSULE
     Dates: start: 20091105
  6. ETHAMBUTOL HYDROCHLORIDE [Concomitant]
     Dosage: TABLET
     Dates: start: 20091105
  7. PYRAZINAMIDE [Concomitant]
     Dosage: TABLET
     Dates: start: 20091105
  8. BENADON [Concomitant]
     Dosage: TABLET
     Dates: start: 20091105

REACTIONS (1)
  - DEATH [None]
